FAERS Safety Report 5364160-0 (Version None)
Quarter: 2007Q2

REPORT INFORMATION
  Report Type: 
  Country: None (occurrence: None)
  Receive Date: 20070620
  Receipt Date: 20070608
  Transmission Date: 20071010
  Serious: Yes (Other)
  Sender: FDA-Public Use
  Company Number: US-PFIZER INC-2007048372

PATIENT
  Sex: Female
  Weight: 68.181 kg

DRUGS (10)
  1. CHANTIX [Suspect]
     Indication: SMOKING CESSATION THERAPY
     Dates: start: 20070401, end: 20070606
  2. INDOMETHACIN [Suspect]
     Indication: GOUT
  3. SIMVASTATIN [Concomitant]
  4. ELAVIL [Concomitant]
  5. ACETYLSALICYLIC ACID SRT [Concomitant]
  6. CALCIUM CHLORIDE [Concomitant]
  7. OMEGA 3 [Concomitant]
  8. ASCORBIC ACID [Concomitant]
  9. MAGNESIUM SULFATE [Concomitant]
  10. PREMARIN [Concomitant]

REACTIONS (2)
  - GOUT [None]
  - HYPERTENSION [None]
